FAERS Safety Report 7723358-4 (Version None)
Quarter: 2011Q3

REPORT INFORMATION
  Report Type: 
  Country: None (occurrence: None)
  Receive Date: 20110901
  Receipt Date: 20110509
  Transmission Date: 20111222
  Serious: No
  Sender: FDA-Public Use
  Company Number: US-KINGPHARMUSA00001-K201100579

PATIENT
  Sex: Female
  Weight: 68.934 kg

DRUGS (5)
  1. LOVASTATIN [Suspect]
     Indication: BLOOD CHOLESTEROL INCREASED
     Dosage: 20 MG, QD
     Route: 048
  2. SONATA [Suspect]
     Indication: INSOMNIA
     Dosage: 10 MG, QD
     Route: 048
     Dates: start: 20100101
  3. TRIAZOLAM [Suspect]
     Indication: INSOMNIA
     Dosage: .25 MG, QD
     Route: 048
     Dates: start: 20100101
  4. LYRICA [Suspect]
     Indication: FIBROMYALGIA
     Dosage: 150 MG, QID
     Route: 048
     Dates: start: 20100101
  5. CALCIUM CARBONATE [Concomitant]
     Indication: DYSPEPSIA

REACTIONS (2)
  - VAGINAL ODOUR [None]
  - INSULIN RESISTANCE [None]
